FAERS Safety Report 25118403 (Version 1)
Quarter: 2025Q1

REPORT INFORMATION
  Report Type: Spontaneous
  Country: CA (occurrence: CA)
  Receive Date: 20250325
  Receipt Date: 20250325
  Transmission Date: 20250409
  Serious: Yes (Other)
  Sender: SANDOZ
  Company Number: CA-SANDOZ-SDZ2025CA017926

PATIENT

DRUGS (1)
  1. TOBRAMYCIN [Suspect]
     Active Substance: TOBRAMYCIN
     Indication: Eye disorder
     Route: 065

REACTIONS (5)
  - Eye disorder [Recovering/Resolving]
  - Condition aggravated [Recovering/Resolving]
  - Retinal disorder [Recovering/Resolving]
  - Eye swelling [Recovering/Resolving]
  - Photophobia [Recovering/Resolving]
